FAERS Safety Report 22057104 (Version 1)
Quarter: 2023Q1

REPORT INFORMATION
  Report Type: Spontaneous
  Country: JP (occurrence: JP)
  Receive Date: 20230303
  Receipt Date: 20230303
  Transmission Date: 20230418
  Serious: Yes (Hospitalization, Other)
  Sender: FDA-Public Use
  Company Number: JP-ALKEM LABORATORIES LIMITED-JP-ALKEM-2022-13607

PATIENT
  Age: 38 Year
  Sex: Female

DRUGS (3)
  1. TACROLIMUS [Suspect]
     Active Substance: TACROLIMUS
     Indication: Immunosuppressant drug therapy
     Dosage: UNK (TARGET TROUGH LEVELS, 10 NG/ML)
     Route: 048
  2. MYCOPHENOLATE MOFETIL [Concomitant]
     Active Substance: MYCOPHENOLATE MOFETIL
     Indication: Immunosuppressant drug therapy
     Dosage: 1000 MILLIGRAM, BID (TWICE DAILY)
     Route: 048
  3. FUROSEMIDE [Concomitant]
     Active Substance: FUROSEMIDE
     Indication: Hypervolaemia
     Dosage: 120 MILLIGRAM, QD (PER DAY)
     Route: 042

REACTIONS (1)
  - Nephropathy toxic [Recovered/Resolved]
